FAERS Safety Report 8118027-5 (Version None)
Quarter: 2012Q1

REPORT INFORMATION
  Report Type: 
  Country: None (occurrence: None)
  Receive Date: 20120207
  Receipt Date: 20120127
  Transmission Date: 20120608
  Serious: Yes (Life-Threatening)
  Sender: FDA-Public Use
  Company Number: HR-GENZYME-RENA-1001443

PATIENT

DRUGS (4)
  1. RENAGEL [Suspect]
     Indication: HYPERPHOSPHATAEMIA
     Dosage: 0.8 G, BID
     Route: 065
     Dates: start: 20111022, end: 20111027
  2. PANTOPRAZOLE [Concomitant]
     Indication: PRODUCT USED FOR UNKNOWN INDICATION
     Dosage: 1 AMP, UNK
     Route: 042
  3. ORTANOL [Concomitant]
     Indication: PRODUCT USED FOR UNKNOWN INDICATION
     Dosage: 20 MG, BID
     Route: 065
  4. RENAGEL [Suspect]
     Indication: RENAL FAILURE CHRONIC

REACTIONS (3)
  - MELAENA [None]
  - GASTRODUODENITIS [None]
  - GASTRIC HAEMORRHAGE [None]
